FAERS Safety Report 9251949 (Version 1)
Quarter: 2013Q2

REPORT INFORMATION
  Report Type: Spontaneous
  Country: JP (occurrence: JP)
  Receive Date: 20130424
  Receipt Date: 20130424
  Transmission Date: 20140414
  Serious: Yes (Other)
  Sender: FDA-Public Use
  Company Number: PHHY2013JP039088

PATIENT
  Sex: 0

DRUGS (3)
  1. DIAZEPAM [Suspect]
     Indication: ANAESTHESIA
     Route: 064
  2. FENTANYL [Suspect]
     Indication: ANAESTHESIA
     Route: 064
  3. ATROPINE [Suspect]
     Route: 064

REACTIONS (2)
  - Bradycardia foetal [Unknown]
  - Foetal exposure during pregnancy [Unknown]
